FAERS Safety Report 10668106 (Version 1)
Quarter: 2014Q4

REPORT INFORMATION
  Report Type: Spontaneous
  Country: BE (occurrence: BE)
  Receive Date: 20141222
  Receipt Date: 20141222
  Transmission Date: 20150529
  Serious: Yes (Other)
  Sender: FDA-Public Use
  Company Number: BE-PFIZER INC-2014349331

PATIENT
  Age: 51 Year
  Sex: Female

DRUGS (16)
  1. LYXUMIA [Concomitant]
     Active Substance: LIXISENATIDE
     Dosage: UNK
  2. CONTRAMAL [Concomitant]
     Active Substance: TRAMADOL HYDROCHLORIDE
     Dosage: UNK
  3. SINTROM [Concomitant]
     Active Substance: ACENOCOUMAROL
     Dosage: UNK
  4. MEDROL [Concomitant]
     Active Substance: METHYLPREDNISOLONE
     Dosage: UNK
  5. LANTUS [Concomitant]
     Active Substance: INSULIN GLARGINE
     Dosage: UNK
  6. OMEPRAZOLE. [Concomitant]
     Active Substance: OMEPRAZOLE
     Dosage: UNK
  7. EMCONCOR MITIS [Concomitant]
     Dosage: UNK
  8. FURADANTINE [Concomitant]
     Active Substance: NITROFURANTOIN
     Dosage: UNK
  9. TAMBOCOR [Concomitant]
     Active Substance: FLECAINIDE ACETATE
     Indication: ATRIAL FIBRILLATION
     Dosage: UNK
  10. LUTENYL [Concomitant]
     Active Substance: NOMEGESTROL ACETATE
     Dosage: UNK
  11. CORDARONE [Suspect]
     Active Substance: AMIODARONE HYDROCHLORIDE
     Dosage: 200 MG, DAILY
     Route: 048
     Dates: start: 20140930, end: 20141016
  12. VALACICLOVIR [Concomitant]
     Active Substance: VALACYCLOVIR HYDROCHLORIDE
     Dosage: UNK
  13. DYTENZIDE [Concomitant]
     Active Substance: HYDROCHLOROTHIAZIDE\TRIAMTERENE
  14. CORDARONE [Suspect]
     Active Substance: AMIODARONE HYDROCHLORIDE
     Indication: ATRIAL FIBRILLATION
     Dosage: 200 MG, 3X/DAY
     Route: 048
     Dates: start: 20140923, end: 20140929
  15. LOSARTAN [Concomitant]
     Active Substance: LOSARTAN
     Dosage: UNK
  16. NOVORAPID [Concomitant]
     Active Substance: INSULIN ASPART
     Dosage: UNK

REACTIONS (13)
  - Chest discomfort [Recovering/Resolving]
  - Vascular pain [Unknown]
  - Joint swelling [Unknown]
  - Vein disorder [Unknown]
  - Disease progression [Recovering/Resolving]
  - Tachycardia [Recovering/Resolving]
  - Fluid retention [Unknown]
  - Atrial fibrillation [Recovering/Resolving]
  - Hyperaldosteronism [Recovering/Resolving]
  - Feeling hot [Recovering/Resolving]
  - Haematoma [Recovering/Resolving]
  - Hypovolaemia [Recovering/Resolving]
  - Hypertension [Recovering/Resolving]
